FAERS Safety Report 8100625-6 (Version None)
Quarter: 2012Q1

REPORT INFORMATION
  Report Type: 
  Country: None (occurrence: None)
  Receive Date: 20120131
  Receipt Date: 20120119
  Transmission Date: 20120608
  Serious: Yes (Other)
  Sender: FDA-Public Use
  Company Number: FR-UCBSA-046516

PATIENT
  Age: 59 Year
  Sex: Female
  Weight: 72 kg

DRUGS (2)
  1. METHOTREXATE [Concomitant]
     Dosage: 20 MG: WEEKLY
     Route: 058
     Dates: end: 20110101
  2. CIMZIA [Suspect]
     Indication: RHEUMATOID ARTHRITIS
     Route: 058
     Dates: start: 20110901, end: 20111104

REACTIONS (1)
  - NEUTROPENIA [None]
